FAERS Safety Report 12947419 (Version 32)
Quarter: 2021Q2

REPORT INFORMATION
  Report Type: Spontaneous
  Country: US (occurrence: US)
  Receive Date: 20161116
  Receipt Date: 20210616
  Transmission Date: 20210716
  Serious: Yes (Hospitalization, Other)
  Sender: FDA-Public Use
  Company Number: US-PFIZER INC-2016528045

PATIENT
  Age: 78 Year
  Sex: Female
  Weight: 73 kg

DRUGS (13)
  1. MIRTAZAPINE. [Concomitant]
     Active Substance: MIRTAZAPINE
     Indication: ANXIETY
     Dosage: 30 MG
  2. LOSARTAN. [Concomitant]
     Active Substance: LOSARTAN
     Indication: HYPERTENSION
     Dosage: 100 MG, 1X/DAY
     Route: 048
  3. PREMARIN [Suspect]
     Active Substance: ESTROGENS, CONJUGATED
     Dosage: 1 MG, 1X/DAY (1MG TABLET OF PREMARIN EVERY NIGHT)
  4. PREMARIN [Suspect]
     Active Substance: ESTROGENS, CONJUGATED
     Dosage: 0.625 MG, DAILY
     Route: 048
  5. AMLODIPINE [Concomitant]
     Active Substance: AMLODIPINE BESYLATE
     Indication: HYPERTENSION
     Dosage: 5 MG, 1X/DAY
  6. PREMARIN [Suspect]
     Active Substance: ESTROGENS, CONJUGATED
     Indication: POSTMENOPAUSE
     Dosage: 1 MG
  7. PREMARIN [Suspect]
     Active Substance: ESTROGENS, CONJUGATED
     Dosage: 0.25 MG, 1X/DAY (0.25MG TABLET EVERY NIGHT AROUND 10PM BEFORE BED)
     Dates: start: 1976
  8. MIRTAZAPINE. [Concomitant]
     Active Substance: MIRTAZAPINE
     Indication: DEPRESSION
     Dosage: 15 MG, 1X/DAY
     Route: 048
     Dates: start: 20190513
  9. PREMARIN [Suspect]
     Active Substance: ESTROGENS, CONJUGATED
     Dosage: 0.625 MG, 1X/DAY
     Route: 048
     Dates: start: 1976
  10. PREMARIN [Suspect]
     Active Substance: ESTROGENS, CONJUGATED
     Dosage: 0.25 MG, 1X/DAY (0.25MG TABLET EVERY NIGHT AROUND 10PM BEFORE BED)
  11. ALPRAZOLAM. [Concomitant]
     Active Substance: ALPRAZOLAM
     Dosage: 0.25 MG
  12. PREMARIN [Suspect]
     Active Substance: ESTROGENS, CONJUGATED
     Indication: HORMONE REPLACEMENT THERAPY
     Dosage: 0.625 MG, 1X/DAY
     Route: 048
     Dates: start: 1974
  13. PREMARIN [Suspect]
     Active Substance: ESTROGENS, CONJUGATED
     Dosage: 0.625 MG, CYCLIC (DAILY FOR 21 DAYS THEN DO NOT TAKE FOR 7 DAYS)
     Route: 048

REACTIONS (20)
  - Depression [Recovered/Resolved]
  - Malaise [Unknown]
  - Pain [Unknown]
  - Memory impairment [Unknown]
  - Product dispensing issue [Unknown]
  - Somnolence [Unknown]
  - Transient ischaemic attack [Unknown]
  - Rheumatoid arthritis [Unknown]
  - Road traffic accident [Recovered/Resolved]
  - Weight decreased [Unknown]
  - Confusional state [Unknown]
  - Presyncope [Unknown]
  - Weight increased [Unknown]
  - Product dose omission issue [Unknown]
  - Neuropathy peripheral [Unknown]
  - Mobility decreased [Unknown]
  - Product packaging issue [Unknown]
  - Feeling abnormal [Not Recovered/Not Resolved]
  - Cerebrovascular accident [Recovering/Resolving]
  - Body height decreased [Unknown]

NARRATIVE: CASE EVENT DATE: 201905
